FAERS Safety Report 22524538 (Version 1)
Quarter: 2023Q2

REPORT INFORMATION
  Report Type: Spontaneous
  Country: KR (occurrence: KR)
  Receive Date: 20230606
  Receipt Date: 20230606
  Transmission Date: 20230721
  Serious: Yes (Hospitalization)
  Sender: FDA-Public Use
  Company Number: KR-ORGANON-O2305KOR003151

PATIENT
  Age: 79 Year
  Sex: Male
  Weight: 63 kg

DRUGS (19)
  1. COZAAR [Suspect]
     Active Substance: LOSARTAN POTASSIUM
     Indication: Hypertension
     Dosage: 1 FORMULATION, 1 DAY (QD)
     Route: 048
     Dates: start: 20210326, end: 20210730
  2. CILOSTAZOL [Concomitant]
     Active Substance: CILOSTAZOL
     Indication: Hypertension
     Dosage: 2 FORMULATION, 1 DAY (QD)
     Route: 048
     Dates: start: 20210503
  3. SILODOSIN [Concomitant]
     Active Substance: SILODOSIN
     Indication: Benign prostatic hyperplasia
     Dosage: 1 FORMULATION, 1 DAY (QD)
     Route: 048
     Dates: start: 20181121
  4. ATORVASTATIN CALCIUM [Concomitant]
     Active Substance: ATORVASTATIN CALCIUM
     Indication: Hyperlipidaemia
     Dosage: 1 FORMULATION, 1 DAY (QD)
     Route: 048
     Dates: start: 20160316
  5. FOLIC ACID [Concomitant]
     Active Substance: FOLIC ACID
     Indication: Prophylaxis
     Dosage: 1 FORMULATION,1 DAY (QD)
     Dates: start: 20201216
  6. LEVOCETIRIZINE HYDROCHLORIDE [Concomitant]
     Active Substance: LEVOCETIRIZINE HYDROCHLORIDE
     Indication: Prophylaxis
     Dosage: 1 FORMULATION, 1 DAY (QD)
     Route: 048
     Dates: start: 20210129
  7. GINKGO BILOBA LEAF DRY EXTRACT [Concomitant]
     Indication: Dizziness
     Dosage: 2 FORMULATION, 1 DAY (QD)
     Route: 048
     Dates: start: 20210721
  8. DIMENHYDRINATE [Concomitant]
     Active Substance: DIMENHYDRINATE
     Indication: Dizziness
     Dosage: 1.5 FORMULATION, 1 DAY (QD)
     Route: 048
     Dates: start: 20210721, end: 20210723
  9. LIDOCAINE HYDROCHLORIDE MONOHYDRATE [Concomitant]
     Active Substance: LIDOCAINE HYDROCHLORIDE
     Indication: Prophylaxis
     Dosage: 1 FORMULATION, 1 DAY (QD); DRUG REPORTED AS LIDOCAINE HYDROCHLORIDE HYDRATE
     Route: 042
     Dates: start: 20210726, end: 20210726
  10. NOREPINEPHRINE BITARTRATE [Concomitant]
     Active Substance: NOREPINEPHRINE BITARTRATE
     Indication: Hypokinesia
     Dosage: 3 FORMULATION, 1 DAY (QD); REPORTED AS NOREPINEPHRINE TARTRATE HYDRATE
     Route: 042
     Dates: start: 20210726, end: 20210726
  11. DEXTROSE [Concomitant]
     Active Substance: DEXTROSE\DEXTROSE MONOHYDRATE
     Indication: Hypophagia
     Dosage: 1 FORMULATION, 1 DAY (QD)
     Route: 042
     Dates: start: 20210726, end: 20210726
  12. GLUCOSE AND SODIUM CHLORIDE, POTASSIUM CHLORIDE [Concomitant]
     Dosage: 1 FORMULATION, 1 DAY (QD)
     Route: 042
     Dates: start: 20210726, end: 20210726
  13. CALCIUM GLUCONATE MONOHYDRATE [Concomitant]
     Active Substance: CALCIUM GLUCONATE MONOHYDRATE
     Indication: Hypokinesia
     Dosage: 1 FORMULATION, 1DAY (QD)
     Route: 042
     Dates: start: 20210726, end: 20210726
  14. SODIUM CHLORIDE [Concomitant]
     Active Substance: SODIUM CHLORIDE
     Indication: Diarrhoea
     Dosage: 1 FORMULATION, QD (1 DAY)
     Route: 042
     Dates: start: 20210726, end: 20210726
  15. SODIUM BICARBONATE [Concomitant]
     Active Substance: SODIUM BICARBONATE
     Indication: Diarrhoea
     Dosage: 1 FORMULATION, 1 DAY (QD)
     Route: 042
     Dates: start: 20210726, end: 20210726
  16. PANTOPRAZOLE SODIUM [Concomitant]
     Active Substance: PANTOPRAZOLE SODIUM
     Indication: Prophylaxis
     Dosage: 1 FORMULATION, 1 DAY ( QD)
     Route: 042
     Dates: start: 20210726, end: 20210728
  17. CHLORHEXIDINE GLUCONATE [Concomitant]
     Active Substance: CHLORHEXIDINE GLUCONATE
     Indication: Hypophagia
     Dosage: 1 FORMULATION, 1 DAY (QD)
     Route: 048
     Dates: start: 20210726, end: 20210726
  18. NORMAL-SERUM-ALBUMIN (HUMAN) [Concomitant]
     Indication: Hypokinesia
     Dosage: 1 FORMULATION, 1 DAY (QD)
     Route: 042
     Dates: start: 20210727, end: 20210728
  19. METRONIDAZOLE [Concomitant]
     Active Substance: METRONIDAZOLE
     Indication: Prophylaxis
     Dosage: 1 FORMULATION, 1 DAY (QD)
     Route: 042
     Dates: start: 20210727, end: 20210727

REACTIONS (5)
  - Diarrhoea [Recovered/Resolved]
  - Dizziness [Recovered/Resolved]
  - Asthenia [Recovered/Resolved]
  - Hypophagia [Recovered/Resolved]
  - Hypokinesia [Recovered/Resolved]

NARRATIVE: CASE EVENT DATE: 20210719
